FAERS Safety Report 5500747-X (Version None)
Quarter: 2007Q4

REPORT INFORMATION
  Report Type: 
  Country: None (occurrence: None)
  Receive Date: 20071019
  Receipt Date: 20070807
  Transmission Date: 20080405
  Serious: Yes (Other)
  Sender: FDA-Public Use
  Company Number: HQWYE464208AUG07

PATIENT
  Age: 72 Year
  Sex: Female
  Weight: 70.37 kg

DRUGS (1)
  1. ADVIL PM (IBUPROFEN/DIPHENHYDRAMINE, CAPSULE, LIQUID FILLED) [Suspect]
     Indication: INSOMNIA
     Dosage: 1 CAPSULE, 1 TIME, ORAL
     Route: 048
     Dates: start: 20070805, end: 20070805

REACTIONS (1)
  - REGURGITATION [None]
